FAERS Safety Report 19988206 (Version 2)
Quarter: 2022Q1

REPORT INFORMATION
  Report Type: Report from Study
  Country: US (occurrence: US)
  Receive Date: 20211022
  Receipt Date: 20220203
  Transmission Date: 20220423
  Serious: Yes (Hospitalization)
  Sender: FDA-Public Use
  Company Number: US-EVEREST MEDICINES II (HK) LIMITED-2021-0553375

PATIENT
  Age: 55 Year
  Sex: Male
  Weight: 51.4 kg

DRUGS (8)
  1. SACITUZUMAB GOVITECAN [Suspect]
     Active Substance: SACITUZUMAB GOVITECAN
     Indication: Squamous cell carcinoma of lung
     Dosage: 514 MG, ONCE ON D1 AND D8, 21 DAY CYCLE
     Route: 042
     Dates: start: 20200312
  2. IBUPROFEN [Concomitant]
     Active Substance: IBUPROFEN
     Indication: Chest discomfort
     Dosage: UNK
     Dates: start: 201910
  3. SENNA [Concomitant]
     Active Substance: SENNA LEAF\SENNOSIDES\SENNOSIDES A AND B
     Indication: Constipation
     Dosage: UNK
     Dates: start: 201911
  4. LORATADINE [Concomitant]
     Active Substance: LORATADINE
     Indication: Hypersensitivity
     Dosage: UNK
     Dates: start: 2000
  5. NORCO [Concomitant]
     Active Substance: ACETAMINOPHEN\HYDROCODONE BITARTRATE
     Indication: Chest pain
     Dosage: UNK
     Dates: start: 2019
  6. FLUTICASONE [Concomitant]
     Active Substance: FLUTICASONE
     Indication: Hypersensitivity
     Dosage: UNK
     Dates: start: 2000
  7. FLOVENT [Concomitant]
     Active Substance: FLUTICASONE PROPIONATE
     Indication: Dyspnoea
     Dosage: UNK
     Dates: start: 2000
  8. ALBUTEROL [Concomitant]
     Active Substance: ALBUTEROL
     Indication: Dyspnoea
     Dosage: UNK
     Dates: start: 2015

REACTIONS (1)
  - Cachexia [Recovered/Resolved with Sequelae]

NARRATIVE: CASE EVENT DATE: 20200323
